FAERS Safety Report 9729021 (Version 1)
Quarter: 2013Q4

REPORT INFORMATION
  Report Type: Spontaneous
  Country: NO (occurrence: NO)
  Receive Date: 20131204
  Receipt Date: 20131204
  Transmission Date: 20140711
  Serious: Yes (Hospitalization)
  Sender: FDA-Public Use
  Company Number: NO-WATSON-2013-22469

PATIENT
  Sex: Male

DRUGS (4)
  1. MYCOPHENOLATE MOFETIL (UNKNOWN) [Suspect]
     Indication: GRANULOMATOSIS WITH POLYANGIITIS
     Dosage: UNK
     Route: 065
  2. PREDNISOLONE (UNKNOWN) [Suspect]
     Indication: GRANULOMATOSIS WITH POLYANGIITIS
     Dosage: 5 MG, DAILY
     Route: 065
     Dates: start: 201104
  3. PREDNISOLONE (UNKNOWN) [Suspect]
     Dosage: UNK
     Route: 048
  4. PREDNISOLONE (UNKNOWN) [Suspect]
     Dosage: 40 MG, DAILY
     Route: 048

REACTIONS (1)
  - Granulomatosis with polyangiitis [Recovered/Resolved]
